FAERS Safety Report 4866493-0 (Version None)
Quarter: 2005Q4

REPORT INFORMATION
  Report Type: 
  Country: None (occurrence: None)
  Receive Date: 20051227
  Receipt Date: 20051005
  Transmission Date: 20060501
  Serious: Yes (Other)
  Sender: FDA-Public Use
  Company Number: US-MERCK-0510USA04679

PATIENT
  Age: 44 Year
  Sex: Female
  Weight: 96 kg

DRUGS (6)
  1. VIOXX [Suspect]
     Indication: ARTHRITIS
     Route: 048
     Dates: start: 19990901, end: 20031101
  2. VIOXX [Suspect]
     Indication: SYSTEMIC LUPUS ERYTHEMATOSUS
     Route: 048
     Dates: start: 19990901, end: 20031101
  3. ZOLOFT [Concomitant]
     Route: 065
  4. LEVOXYL [Concomitant]
     Route: 065
  5. PREVACID [Concomitant]
     Route: 065
  6. PROCARDIA [Concomitant]
     Route: 065

REACTIONS (7)
  - CARDIOVASCULAR DISORDER [None]
  - CAROTID ARTERY STENOSIS [None]
  - HEPATIC CYST [None]
  - HIATUS HERNIA [None]
  - MENISCUS LESION [None]
  - THROMBOSIS [None]
  - TRANSIENT ISCHAEMIC ATTACK [None]
